FAERS Safety Report 16782963 (Version 1)
Quarter: 2019Q3

REPORT INFORMATION
  Report Type: Spontaneous
  Country: US (occurrence: US)
  Receive Date: 20190906
  Receipt Date: 20190906
  Transmission Date: 20191005
  Serious: No
  Sender: FDA-Public Use
  Company Number: US-TEVA-2019-US-1103899

PATIENT
  Sex: Female

DRUGS (1)
  1. ALPRAZOLAM ACTIVIS TE [Suspect]
     Active Substance: ALPRAZOLAM
     Route: 065

REACTIONS (2)
  - Product substitution issue [Unknown]
  - Feeling abnormal [Unknown]
